FAERS Safety Report 4401360-8 (Version None)
Quarter: 2004Q3

REPORT INFORMATION
  Report Type: 
  Country: None (occurrence: None)
  Receive Date: 20040907
  Receipt Date: 20040323
  Transmission Date: 20050211
  Serious: No
  Sender: FDA-Public Use
  Company Number: US-BRISTOL-MYERS SQUIBB COMPANY-12540258

PATIENT
  Age: 31 Year
  Sex: Female
  Weight: 91 kg

DRUGS (3)
  1. COUMADIN [Suspect]
     Indication: THROMBOSIS
     Dosage: INITIAL DAILY DOSE NOT PROVIDED.
     Route: 048
     Dates: start: 20031001
  2. LOVENOX [Suspect]
     Dosage: DOSE NOT PROVIDED-BID FOR 5-10 DAYS; ANOTHER COURSE FOR 5-10 DAYS.
     Dates: start: 20040301
  3. LEXAPRO [Concomitant]

REACTIONS (1)
  - INTERNATIONAL NORMALISED RATIO DECREASED [None]
